FAERS Safety Report 7618436-4 (Version None)
Quarter: 2011Q3

REPORT INFORMATION
  Report Type: 
  Country: None (occurrence: None)
  Receive Date: 20110718
  Receipt Date: 20110708
  Transmission Date: 20111222
  Serious: Yes (Hospitalization, Other)
  Sender: FDA-Public Use
  Company Number: US-ABBOTT-11P-163-0717396-00

PATIENT
  Sex: Female
  Weight: 65.7 kg

DRUGS (29)
  1. HYDROCODONE BITARTRATE AND ACETAMINOPHEN [Suspect]
     Indication: BACK PAIN
     Dosage: 5/500 QID AS NEEDED
     Route: 048
     Dates: start: 20110212
  2. SULFATRIM-DS [Concomitant]
     Indication: PRODUCT USED FOR UNKNOWN INDICATION
     Dosage: 800/160
     Dates: start: 20110310
  3. PHENOSODIUM PHENOLATE MOUTHWASH [Concomitant]
     Indication: DRY MOUTH
     Route: 048
     Dates: start: 20080101
  4. METAXALONE [Concomitant]
     Indication: MUSCLE SPASMS
     Dates: start: 20110110
  5. VITAMIN D [Concomitant]
     Indication: PRODUCT USED FOR UNKNOWN INDICATION
     Dates: start: 20090410
  6. SARNA ANTI-ITCH LOTION (MENTHOL AND CAMPHOR) [Concomitant]
     Indication: PRODUCT USED FOR UNKNOWN INDICATION
     Dosage: AS REQUIRED
     Dates: start: 20091016
  7. LACTULOSE [Concomitant]
     Indication: PRODUCT USED FOR UNKNOWN INDICATION
     Dates: start: 20110328
  8. BACLOFEN [Suspect]
     Indication: ANAL SPHINCTER ATONY
     Route: 048
     Dates: start: 20110408
  9. VITAMIN B-12 [Concomitant]
     Indication: NEUROPATHY PERIPHERAL
     Route: 060
     Dates: start: 20100701
  10. GLUCOSAMINE SULFATE [Concomitant]
     Indication: PRODUCT USED FOR UNKNOWN INDICATION
     Dates: start: 20100411
  11. FOLIC ACID [Concomitant]
     Indication: PRODUCT USED FOR UNKNOWN INDICATION
     Dates: start: 20100411
  12. ASPIRIN [Suspect]
     Indication: CARDIOVASCULAR EVENT PROPHYLAXIS
     Route: 048
     Dates: start: 20110322
  13. CALCIUM CARBONATE [Concomitant]
     Indication: PRODUCT USED FOR UNKNOWN INDICATION
     Dates: start: 19900101
  14. AMITIZA [Suspect]
     Indication: PRODUCT USED FOR UNKNOWN INDICATION
     Dates: end: 20110408
  15. OMEPRAZOLE [Concomitant]
     Indication: GASTROOESOPHAGEAL REFLUX DISEASE
     Route: 048
     Dates: start: 20100411
  16. CARBIDOPA + LEVODOPA [Concomitant]
     Indication: PARKINSON'S DISEASE
     Dosage: 25/100
     Dates: start: 20110223
  17. DICLOFENAC EPOLAMINUM [Concomitant]
     Indication: BACK PAIN
     Dosage: PATCH
     Route: 062
     Dates: start: 20110121
  18. MELOXICAM [Concomitant]
     Indication: BACK PAIN
     Route: 048
     Dates: start: 20110214
  19. RECLAST [Concomitant]
     Indication: PRODUCT USED FOR UNKNOWN INDICATION
     Dates: start: 20091103
  20. MAGNESIUM [Concomitant]
     Indication: PRODUCT USED FOR UNKNOWN INDICATION
     Dates: start: 19900101
  21. CHARCOAL ACTIVATED [Concomitant]
     Indication: PRODUCT USED FOR UNKNOWN INDICATION
     Dates: start: 20110212
  22. ZINC [Concomitant]
     Indication: PRODUCT USED FOR UNKNOWN INDICATION
     Dates: start: 19900101
  23. SKELAXIN [Concomitant]
     Indication: PRODUCT USED FOR UNKNOWN INDICATION
  24. DESOWEN [Concomitant]
     Indication: PRODUCT USED FOR UNKNOWN INDICATION
     Dosage: AS REQUIRED
     Dates: start: 20090723
  25. CARBOXYMETHYLCELLULOSE SODIUM [Concomitant]
     Indication: DRY EYE
     Route: 047
     Dates: start: 20110201
  26. DICLOFENAC EPOLAMINUM [Concomitant]
     Indication: MUSCLE SPASMS
  27. BENADRYL [Concomitant]
     Indication: PRODUCT USED FOR UNKNOWN INDICATION
     Dates: start: 20100628
  28. ASCORBIC ACID [Concomitant]
     Indication: PRODUCT USED FOR UNKNOWN INDICATION
     Dates: start: 20100411
  29. MULTI-VITAMIN [Concomitant]
     Indication: PRODUCT USED FOR UNKNOWN INDICATION

REACTIONS (14)
  - HYPOPHAGIA [None]
  - URINE OUTPUT INCREASED [None]
  - EXCORIATION [None]
  - DYSURIA [None]
  - VOMITING [None]
  - CONSTIPATION [None]
  - DRY MOUTH [None]
  - NAUSEA [None]
  - CONFUSIONAL STATE [None]
  - HALLUCINATION [None]
  - FALL [None]
  - POSTOPERATIVE ILEUS [None]
  - ABNORMAL DREAMS [None]
  - URINARY TRACT INFECTION [None]
